FAERS Safety Report 9066907 (Version 1)
Quarter: 2013Q1

REPORT INFORMATION
  Report Type: Report from Study
  Country: US (occurrence: US)
  Receive Date: 20130131
  Receipt Date: 20130131
  Transmission Date: 20140127
  Serious: No
  Sender: FDA-Public Use
  Company Number: US-ABBOTT-12P-163-1002455-00

PATIENT
  Age: 50 Year
  Sex: Female

DRUGS (10)
  1. HUMIRA [Suspect]
     Indication: PSORIASIS
     Route: 058
     Dates: start: 20121015, end: 20121015
  2. HUMIRA [Suspect]
     Route: 058
     Dates: start: 20121030
  3. MELOXICAM [Concomitant]
     Indication: ARTHRITIS
  4. UNKNOWN PSORIASIS TOPICAL CREAMS [Concomitant]
     Indication: PSORIASIS
     Route: 061
  5. RESTASIS [Concomitant]
     Indication: DRY EYE
     Dosage: EYE DROPS- TWICE
     Route: 047
  6. EPINASTINE HCL [Concomitant]
     Indication: HYPERSENSITIVITY
  7. MULTIVITAMIN [Concomitant]
     Indication: VITAMIN SUPPLEMENTATION
     Dosage: DAILY
  8. CALCIUM [Concomitant]
     Indication: MINERAL SUPPLEMENTATION
     Dosage: DAILY
  9. MEGA 3 COMPLEX [Concomitant]
     Indication: VITAMIN SUPPLEMENTATION
     Dosage: 1 DAILY
  10. VITAMIN D [Concomitant]
     Indication: VITAMIN D DEFICIENCY

REACTIONS (5)
  - Fatigue [Not Recovered/Not Resolved]
  - Pollakiuria [Recovering/Resolving]
  - Dysuria [Recovering/Resolving]
  - Cystitis [Recovering/Resolving]
  - Psoriasis [Recovering/Resolving]
